FAERS Safety Report 14477805 (Version 1)
Quarter: 2018Q1

REPORT INFORMATION
  Report Type: Report from Study
  Country: US (occurrence: US)
  Receive Date: 20180201
  Receipt Date: 20180201
  Transmission Date: 20180509
  Serious: No
  Sender: FDA-Public Use
  Company Number: US-EXELIXIS-CABO-17009891

PATIENT
  Age: 52 Year
  Sex: Female

DRUGS (13)
  1. MELATONIN [Concomitant]
     Active Substance: MELATONIN
  2. LANTUS [Concomitant]
     Active Substance: INSULIN GLARGINE
  3. DULCOLAX NOS [Concomitant]
     Active Substance: BISACODYL OR DOCUSATE SODIUM
  4. FERROUS SULFATE. [Concomitant]
     Active Substance: FERROUS SULFATE
  5. VITAMIN D3 [Concomitant]
     Active Substance: CHOLECALCIFEROL
  6. OXYCODONE [Concomitant]
     Active Substance: OXYCODONE
  7. GINGER. [Concomitant]
     Active Substance: GINGER
  8. CABOMETYX [Suspect]
     Active Substance: CABOZANTINIB S-MALATE
     Indication: RENAL CANCER
     Dosage: 60 MG, QD
     Route: 048
     Dates: start: 20170615
  9. ZOFRAN [Concomitant]
     Active Substance: ONDANSETRON HYDROCHLORIDE
  10. OXYCONTIN [Concomitant]
     Active Substance: OXYCODONE HYDROCHLORIDE
  11. STOMATITIS COCKTAIL [Concomitant]
  12. COMPAZINE [Concomitant]
     Active Substance: PROCHLORPERAZINE MALEATE
  13. LOPERAMIDE [Concomitant]
     Active Substance: LOPERAMIDE

REACTIONS (3)
  - Leukopenia [Unknown]
  - Thrombocytopenia [Unknown]
  - Transaminases increased [Unknown]

NARRATIVE: CASE EVENT DATE: 20170720
